FAERS Safety Report 7184204-3 (Version None)
Quarter: 2010Q4

REPORT INFORMATION
  Report Type: 
  Country: None (occurrence: None)
  Receive Date: 20101222
  Receipt Date: 20100604
  Transmission Date: 20110411
  Serious: Yes (Hospitalization)
  Sender: FDA-Public Use
  Company Number: US-AMGEN-KDL412298

PATIENT

DRUGS (2)
  1. ENBREL [Suspect]
     Indication: PRODUCT USED FOR UNKNOWN INDICATION
  2. ADALIMUMAB [Suspect]
     Indication: ARTHRITIS
     Dosage: 40 MG, UNK
     Route: 058

REACTIONS (4)
  - DRUG INEFFECTIVE [None]
  - PRURITUS [None]
  - SKIN DISCOLOURATION [None]
  - THROMBOSIS [None]
